FAERS Safety Report 8258919-X (Version None)
Quarter: 2012Q2

REPORT INFORMATION
  Report Type: 
  Country: None (occurrence: None)
  Receive Date: 20120404
  Receipt Date: 20120326
  Transmission Date: 20120825
  Serious: Yes (Hospitalization, Other)
  Sender: FDA-Public Use
  Company Number: US-ELI_LILLY_AND_COMPANY-US201009006000

PATIENT
  Sex: Male

DRUGS (21)
  1. FLONASE [Concomitant]
  2. MULTI-VITAMIN [Concomitant]
     Dosage: UNK, QD
  3. PRILOSEC [Concomitant]
     Dosage: 20 MG, QD
  4. VITAMIN D [Concomitant]
     Dosage: 2000 IU, QD
  5. LYRICA [Concomitant]
  6. FORTEO [Suspect]
     Dosage: 20 UG, QD
     Route: 058
  7. FORTEO [Suspect]
     Dosage: 20 UG, QD
     Route: 058
  8. DICYCLOMINE [Concomitant]
  9. FORTEO [Suspect]
     Dosage: 20 UG, QD
     Route: 058
  10. BENTYL [Concomitant]
     Dosage: 20 MG, QID
  11. MAGNESIUM HYDROXIDE TAB [Concomitant]
  12. FORTEO [Suspect]
     Dosage: 20 UG, QD
     Route: 058
  13. FORTEO [Suspect]
     Dosage: 20 UG, QD
  14. LIDODERM [Concomitant]
     Indication: PAIN
  15. FORTEO [Suspect]
     Dosage: 20 UG, QD
     Route: 058
  16. FORTEO [Suspect]
     Dosage: 20 UG, QD
  17. FORTEO [Suspect]
     Indication: OSTEOPOROSIS
     Dosage: 20 UG, QD
     Route: 058
     Dates: start: 20100901
  18. FORTEO [Suspect]
     Dosage: 20 UG, QD
     Route: 058
  19. TUSSIONEX [Concomitant]
     Indication: COUGH
     Dosage: UNK, BID
  20. SYMBICORT [Concomitant]
  21. TRAMADOL HCL [Concomitant]

REACTIONS (20)
  - AMNESIA [None]
  - GAIT DISTURBANCE [None]
  - WEIGHT INCREASED [None]
  - ASTHENIA [None]
  - BONE PAIN [None]
  - DIZZINESS POSTURAL [None]
  - PAIN [None]
  - HEART RATE DECREASED [None]
  - BALANCE DISORDER [None]
  - HEADACHE [None]
  - DYSPNOEA [None]
  - ILL-DEFINED DISORDER [None]
  - INJECTION SITE DISCOMFORT [None]
  - DYSPEPSIA [None]
  - SYNCOPE [None]
  - COUGH [None]
  - ARTHRALGIA [None]
  - THERAPEUTIC RESPONSE DECREASED [None]
  - HELICOBACTER INFECTION [None]
  - BACK PAIN [None]
